FAERS Safety Report 8129395-2 (Version None)
Quarter: 2011Q4

REPORT INFORMATION
  Report Type: 
  Country: None (occurrence: None)
  Receive Date: 20111227
  Receipt Date: 20111019
  Transmission Date: 20120403
  Serious: No
  Sender: FDA-Public Use
  Company Number: PHEH2011US06400

PATIENT
  Age: 57 Year
  Sex: Female

DRUGS (2)
  1. ATARAX [Concomitant]
  2. GILENYA [Suspect]
     Indication: MULTIPLE SCLEROSIS
     Dosage: 0.5 MG, QD, ORAL
     Route: 048
     Dates: start: 20111005

REACTIONS (5)
  - FATIGUE [None]
  - BLOOD PRESSURE INCREASED [None]
  - RESPIRATORY DISORDER [None]
  - PRURITUS [None]
  - URTICARIA [None]
